FAERS Safety Report 8312576-2 (Version None)
Quarter: 2012Q2

REPORT INFORMATION
  Report Type: 
  Country: None (occurrence: None)
  Receive Date: 20120425
  Receipt Date: 20120425
  Transmission Date: 20120825
  Serious: Yes (Death, Life-Threatening, Hospitalization, Disabling)
  Sender: FDA-Public Use
  Company Number: None

PATIENT
  Age: 83 Year
  Sex: Female
  Weight: 102.3 kg

DRUGS (1)
  1. SANCTURA XR [Suspect]
     Indication: INCONTINENCE
     Dosage: STANDARD DOSE 1 X A DAY ORAL
     Route: 048
     Dates: start: 20111014

REACTIONS (4)
  - INTESTINAL PERFORATION [None]
  - GASTROINTESTINAL MOTILITY DISORDER [None]
  - INFECTION [None]
  - PAIN [None]
